FAERS Safety Report 19793104 (Version 1)
Quarter: 2021Q3

REPORT INFORMATION
  Report Type: Spontaneous
  Country: US (occurrence: US)
  Receive Date: 20210906
  Receipt Date: 20210906
  Transmission Date: 20211014
  Serious: No
  Sender: FDA-Public Use
  Company Number: US-JIANGSU HENGRUI MEDICINE CO., LTD.-2118024

PATIENT
  Age: 78 Year
  Sex: Female
  Weight: 73 kg

DRUGS (4)
  1. BENADRYL [Concomitant]
     Active Substance: DIPHENHYDRAMINE HYDROCHLORIDE
  2. DEXAMETHASONE. [Concomitant]
     Active Substance: DEXAMETHASONE
     Dates: start: 20210702
  3. DOCETAXEL INJECTION USP, 20 MG/1 ML, 80 MG/4 ML, AND 160 MG/8 ML (20 M [Suspect]
     Active Substance: DOCETAXEL
     Indication: HEAD AND NECK CANCER
     Route: 041
     Dates: start: 20210702
  4. PEPCID [Concomitant]
     Active Substance: FAMOTIDINE

REACTIONS (1)
  - Hypersensitivity [Recovered/Resolved]

NARRATIVE: CASE EVENT DATE: 20210702
